FAERS Safety Report 7607643-2 (Version None)
Quarter: 2011Q3

REPORT INFORMATION
  Report Type: 
  Country: None (occurrence: None)
  Receive Date: 20110713
  Receipt Date: 20110330
  Transmission Date: 20111222
  Serious: Yes (Hospitalization)
  Sender: FDA-Public Use
  Company Number: PHHY2011VE43757

PATIENT
  Sex: Female

DRUGS (3)
  1. CHONDROITIN SULFATE SODIUM [Concomitant]
  2. ZOLEDRONOC ACID [Suspect]
     Indication: OSTEOPENIA
     Dosage: 5 MG
     Route: 042
     Dates: start: 20101101
  3. CALCIUM CARBONATE [Concomitant]

REACTIONS (1)
  - NO ADVERSE EVENT [None]
